FAERS Safety Report 23327039 (Version 2)
Quarter: 2024Q1

REPORT INFORMATION
  Report Type: Spontaneous
  Country: RU (occurrence: None)
  Receive Date: 20231221
  Receipt Date: 20240102
  Transmission Date: 20240410
  Serious: Yes (Other)
  Sender: FDA-Public Use
  Company Number: RU-ROCHE-3477001

PATIENT
  Age: 71 Year
  Sex: Male

DRUGS (5)
  1. ATEZOLIZUMAB [Suspect]
     Active Substance: ATEZOLIZUMAB
     Indication: Hepatocellular carcinoma
     Dosage: 2ND CYCLE -08/JUL/2022, 3RD CYCLE- 29/NOV/2022, 4TH- 06/AUG/2022, 5TH- 20/SEP/2022, 6TH- 14/DEC/2022
     Route: 041
     Dates: start: 20220506
  2. BEVACIZUMAB [Suspect]
     Active Substance: BEVACIZUMAB
     Indication: Hepatocellular carcinoma
     Dosage: 2ND CYCLE -08/JUL/2022, 3RD CYCLE- 29/NOV/2022, 4TH- 06/AUG/2022, 5TH- 20/SEP/2022, 6TH- 14/DEC/2022
     Route: 041
     Dates: start: 20220506
  3. ZOLEDRONIC ACID [Concomitant]
     Active Substance: ZOLEDRONIC ACID
  4. CHOLECALCIFEROL [Concomitant]
     Active Substance: CHOLECALCIFEROL
  5. CALCIUM CARBONATE [Concomitant]
     Active Substance: CALCIUM CARBONATE

REACTIONS (10)
  - Bronchiolitis [Unknown]
  - Pneumonia [Unknown]
  - Colitis [Unknown]
  - Abdominal distension [Unknown]
  - Body temperature increased [Unknown]
  - Decreased appetite [Unknown]
  - Haemangioma of liver [Unknown]
  - Abdominal discomfort [Unknown]
  - Disease progression [Unknown]
  - Pain [Unknown]

NARRATIVE: CASE EVENT DATE: 20230205
